FAERS Safety Report 4511784-6 (Version None)
Quarter: 2004Q4

REPORT INFORMATION
  Report Type: 
  Country: None (occurrence: None)
  Receive Date: 20041123
  Receipt Date: 20041123
  Transmission Date: 20050328
  Serious: Yes (Other)
  Sender: FDA-Public Use
  Company Number: None

PATIENT
  Age: 58 Year
  Sex: Male
  Weight: 87.5 kg

DRUGS (5)
  1. LISINOPRIL [Suspect]
  2. IBESARTAN [Concomitant]
  3. CARBAMAZEPINE [Concomitant]
  4. PHENYTOIN [Concomitant]
  5. CLOTRIMAZOLE 1% TOP CREAM [Concomitant]

REACTIONS (1)
  - COUGH [None]
